FAERS Safety Report 10253288 (Version 1)
Quarter: 2014Q2

REPORT INFORMATION
  Report Type: Spontaneous
  Country: BE (occurrence: BE)
  Receive Date: 20140623
  Receipt Date: 20140623
  Transmission Date: 20141212
  Serious: Yes (Hospitalization)
  Sender: FDA-Public Use
  Company Number: BE-ABBVIE-14P-013-1250692-00

PATIENT
  Age: 42 Year
  Sex: Male
  Weight: 76 kg

DRUGS (6)
  1. LIPANTHYL [Suspect]
     Indication: DYSLIPIDAEMIA
     Route: 048
     Dates: start: 200510, end: 20140516
  2. ALL OTHER THERAPEUTIC PRODUCTS [Interacting]
     Indication: HIV INFECTION
     Dosage: TOTAL DAILY DOSE: 150/180/200/245 MG, STRIBILD (COBICISTAT, ELVITEGRAVIR)
     Route: 048
     Dates: start: 20140416, end: 20140516
  3. PRAVASTATINE [Interacting]
     Indication: DYSLIPIDAEMIA
     Route: 048
     Dates: start: 200809, end: 20140516
  4. ZESTRIL [Concomitant]
     Indication: HYPERTENSION
     Route: 048
     Dates: start: 200902, end: 20140516
  5. ZYLORIC [Concomitant]
     Indication: ARTHRITIS
     Route: 048
     Dates: start: 200405, end: 20140516
  6. ASAFLOW [Concomitant]
     Indication: VENOUS THROMBOSIS
     Route: 048
     Dates: start: 201101, end: 20140516

REACTIONS (3)
  - Drug interaction [Unknown]
  - Rhabdomyolysis [Not Recovered/Not Resolved]
  - Renal failure [Not Recovered/Not Resolved]
